FAERS Safety Report 9452931 (Version 2)
Quarter: 2013Q3

REPORT INFORMATION
  Report Type: Spontaneous
  Country: US (occurrence: US)
  Receive Date: 20130812
  Receipt Date: 20130923
  Transmission Date: 20140515
  Serious: Yes (Other)
  Sender: FDA-Public Use
  Company Number: US-JNJFOC-20130801739

PATIENT
  Age: 69 Year
  Sex: Male
  Weight: 99.79 kg

DRUGS (8)
  1. STELARA [Suspect]
     Indication: PSORIASIS
     Dosage: INCREASED DOSE
     Route: 058
  2. STELARA [Suspect]
     Indication: PSORIASIS
     Dosage: DOSE 2
     Route: 058
     Dates: start: 20130622
  3. STELARA [Suspect]
     Indication: PSORIASIS
     Dosage: 45 MG/ML DOSE 1
     Route: 058
     Dates: start: 20130522
  4. FLAXSEED [Concomitant]
     Route: 048
  5. ALEVE [Concomitant]
     Route: 048
  6. MULTIVITAMINS [Concomitant]
     Route: 048
  7. ASPIRIN [Concomitant]
     Route: 065
  8. SORIATANE [Concomitant]
     Route: 065

REACTIONS (3)
  - Cellulitis [Recovered/Resolved]
  - Psoriasis [Recovering/Resolving]
  - Drug ineffective [Unknown]
